FAERS Safety Report 6208883-X (Version None)
Quarter: 2009Q2

REPORT INFORMATION
  Report Type: 
  Country: None (occurrence: None)
  Receive Date: 20090529
  Receipt Date: 20090520
  Transmission Date: 20091009
  Serious: Yes (Hospitalization)
  Sender: FDA-Public Use
  Company Number: B0574907A

PATIENT
  Age: 62 Year
  Sex: Female

DRUGS (6)
  1. AUGMENTIN '125' [Suspect]
     Route: 042
     Dates: start: 20090226, end: 20090302
  2. TAVANIC [Suspect]
     Route: 042
     Dates: start: 20090226, end: 20090302
  3. TAZOCILLINE [Suspect]
     Route: 042
     Dates: start: 20090302, end: 20090326
  4. AMIKLIN [Suspect]
     Route: 042
     Dates: start: 20090302, end: 20090317
  5. VANCOMYCINE [Suspect]
     Route: 042
     Dates: start: 20090318, end: 20090326
  6. TRIFLUCAN [Suspect]
     Route: 048
     Dates: start: 20090304, end: 20090326

REACTIONS (13)
  - DERMATITIS BULLOUS [None]
  - DRUG RASH WITH EOSINOPHILIA AND SYSTEMIC SYMPTOMS [None]
  - DYSKINESIA [None]
  - EOSINOPHILIA [None]
  - ERYTHEMA [None]
  - EYELID OEDEMA [None]
  - FACE OEDEMA [None]
  - GAMMOPATHY [None]
  - LYMPHADENOPATHY [None]
  - PURPURA [None]
  - RASH [None]
  - SKIN EXFOLIATION [None]
  - TOXIC SKIN ERUPTION [None]
